FAERS Safety Report 10025803 (Version 2)
Quarter: 2014Q1

REPORT INFORMATION
  Report Type: Spontaneous
  Country: GB (occurrence: GB)
  Receive Date: 20140320
  Receipt Date: 20140320
  Transmission Date: 20141002
  Serious: Yes (Other)
  Sender: FDA-Public Use
  Company Number: GB-MERCK-1403GBR009767

PATIENT
  Age: 30 Year
  Sex: Female

DRUGS (1)
  1. FINASTERIDE [Suspect]
     Dosage: UNK
     Dates: end: 20130812

REACTIONS (2)
  - Exposure during pregnancy [Unknown]
  - Exposure via partner [Unknown]
